FAERS Safety Report 14407004 (Version 1)
Quarter: 2018Q1

REPORT INFORMATION
  Report Type: Spontaneous
  Country: FR (occurrence: FR)
  Receive Date: 20180118
  Receipt Date: 20180118
  Transmission Date: 20180509
  Serious: Yes (Hospitalization)
  Sender: FDA-Public Use
  Company Number: FR-009507513-1801FRA005449

PATIENT
  Age: 84 Year
  Sex: Male
  Weight: 74 kg

DRUGS (10)
  1. ZOCOR [Suspect]
     Active Substance: SIMVASTATIN
     Indication: DYSLIPIDAEMIA
     Dosage: 1 DF, QD
     Route: 048
     Dates: end: 201712
  2. EZETROL [Concomitant]
     Active Substance: EZETIMIBE
     Dosage: UNKNOWN
  3. KARDEGIC [Suspect]
     Active Substance: ASPIRIN DL-LYSINE
     Indication: ISCHAEMIC STROKE
     Dosage: 1 DF, QD (POWDER FOR DRINKABLE SOLUTION IN PACKET-DOSE)
     Route: 048
     Dates: end: 20171201
  4. TADENAN [Concomitant]
     Active Substance: PYGEUM
     Dosage: SOFT CAPSULE
  5. AMYCOR [Concomitant]
     Active Substance: BIFONAZOLE
     Dosage: UNKNOWN
  6. VIRLIX [Concomitant]
     Active Substance: CETIRIZINE HYDROCHLORIDE
     Dosage: SCORED FILM-COATED TABLET
  7. TANAKAN [Concomitant]
     Active Substance: GINKGO
     Dosage: UNKNOWN
  8. AMIODARONE [Concomitant]
     Active Substance: AMIODARONE
  9. CHIBRO-PROSCAR [Concomitant]
     Active Substance: FINASTERIDE
     Dosage: UNKNOWN
  10. LOCERYL [Concomitant]
     Active Substance: AMOROLFINE HYDROCHLORIDE
     Dosage: UNKNOWN

REACTIONS (2)
  - Subarachnoid haemorrhage [Recovered/Resolved]
  - Thrombocytopenia [Recovered/Resolved]

NARRATIVE: CASE EVENT DATE: 20171201
